FAERS Safety Report 4933399-8 (Version None)
Quarter: 2006Q1

REPORT INFORMATION
  Report Type: 
  Country: None (occurrence: None)
  Receive Date: 20060306
  Receipt Date: 20051208
  Transmission Date: 20060701
  Serious: Yes (Hospitalization, Disabling)
  Sender: FDA-Public Use
  Company Number: US-MERCK-0512USA01599

PATIENT
  Age: 49 Year
  Sex: Male
  Weight: 86 kg

DRUGS (21)
  1. VIOXX [Suspect]
     Indication: ARTHRITIS
     Route: 048
     Dates: start: 19990101, end: 20040901
  2. CARDIZEM [Concomitant]
     Indication: CARDIAC DISORDER
     Route: 065
     Dates: start: 19900101, end: 19970101
  3. ECOTRIN [Concomitant]
     Indication: ARTERIOSCLEROSIS
     Route: 065
     Dates: start: 19900101
  4. ECOTRIN [Concomitant]
     Indication: OSTEOARTHRITIS
     Route: 065
     Dates: start: 19900101
  5. LIPITOR [Concomitant]
     Indication: BLOOD CHOLESTEROL
     Route: 065
     Dates: start: 19970101, end: 20050101
  6. SAW PALMETTO [Concomitant]
     Indication: PROSTATISM
     Route: 065
     Dates: start: 19900101, end: 20020101
  7. CALTRATE [Concomitant]
     Indication: CARDIAC DISORDER
     Route: 065
     Dates: start: 19990101, end: 20020101
  8. CALTRATE [Concomitant]
     Indication: ANGINA PECTORIS
     Route: 065
     Dates: start: 19990101, end: 20020101
  9. COENZYME Q10 PLUS VITAMIN E [Concomitant]
     Indication: MINERAL SUPPLEMENTATION
     Route: 065
     Dates: start: 19900101, end: 20020101
  10. COENZYME Q10 PLUS VITAMIN E [Concomitant]
     Indication: OSTEOPOROSIS
     Route: 065
     Dates: start: 19900101, end: 20020101
  11. SELENIUM (UNSPECIFIED) [Concomitant]
     Indication: PROPHYLAXIS
     Route: 065
     Dates: start: 19900101, end: 20020101
  12. GARLIC [Concomitant]
     Indication: PROPHYLAXIS
     Route: 065
     Dates: start: 19900101, end: 20020101
  13. MIOFLEX (ACETAMINOPHEN (+) CARISOPRODOL (+) PHENYLBUTAZONE) [Concomitant]
     Indication: PAIN
     Route: 065
     Dates: start: 20010101, end: 20020101
  14. MIOFLEX (ACETAMINOPHEN (+) CARISOPRODOL (+) PHENYLBUTAZONE) [Concomitant]
     Indication: HYPOTONIA
     Route: 065
     Dates: start: 20010101, end: 20020101
  15. DARVOCET-N 50 [Concomitant]
     Indication: PAIN
     Route: 065
     Dates: start: 20010101, end: 20020101
  16. SOMA [Concomitant]
     Indication: PAIN
     Route: 065
     Dates: start: 20010101, end: 20020101
  17. ULTRAM [Concomitant]
     Indication: PAIN
     Route: 065
     Dates: start: 20020101, end: 20020101
  18. AMITRIPTYLIN [Concomitant]
     Indication: PAIN
     Route: 065
     Dates: start: 20030101, end: 20040101
  19. FLEXERIL [Concomitant]
     Indication: PAIN
     Route: 065
     Dates: start: 20040101, end: 20040101
  20. FOSAMAX [Concomitant]
     Indication: OSTEOPOROSIS
     Route: 048
  21. PRILOSEC [Concomitant]
     Indication: GASTRIC ULCER
     Route: 048

REACTIONS (4)
  - CORONARY ARTERY DISEASE [None]
  - HYPERTENSION [None]
  - INJURY [None]
  - MYOCARDIAL INFARCTION [None]
